FAERS Safety Report 25278601 (Version 1)
Quarter: 2025Q2

REPORT INFORMATION
  Report Type: Spontaneous
  Country: CN (occurrence: CN)
  Receive Date: 20250507
  Receipt Date: 20250507
  Transmission Date: 20250717
  Serious: Yes (Disabling)
  Sender: PFIZER
  Company Number: CN-TAKEDA-2025TUS041895

PATIENT
  Age: 75 Year
  Sex: Female
  Weight: 54 kg

DRUGS (2)
  1. ADCETRIS [Suspect]
     Active Substance: BRENTUXIMAB VEDOTIN
     Indication: Hodgkin^s disease
     Dosage: 50 MILLIGRAM, QD
     Route: 041
     Dates: start: 20250226, end: 20250226
  2. GEMCITABINE HYDROCHLORIDE [Suspect]
     Active Substance: GEMCITABINE HYDROCHLORIDE
     Indication: Hodgkin^s disease
     Dosage: 1000 MILLIGRAM, QD
     Route: 041
     Dates: start: 20250227, end: 20250227

REACTIONS (1)
  - Myelosuppression [Recovering/Resolving]

NARRATIVE: CASE EVENT DATE: 20250301
